FAERS Safety Report 4931124-8 (Version None)
Quarter: 2006Q1

REPORT INFORMATION
  Report Type: 
  Country: None (occurrence: None)
  Receive Date: 20060227
  Receipt Date: 20060216
  Transmission Date: 20060701
  Serious: Yes (Death)
  Sender: FDA-Public Use
  Company Number: 230003M06CAN

PATIENT
  Age: 35 Year
  Sex: Female

DRUGS (1)
  1. REBIF [Suspect]
     Dates: start: 20050906

REACTIONS (5)
  - ABDOMINAL DISTENSION [None]
  - CARDIAC ARREST [None]
  - CONDITION AGGRAVATED [None]
  - HYPERTENSION [None]
  - MULTIPLE SCLEROSIS [None]
